FAERS Safety Report 6348091-5 (Version None)
Quarter: 2009Q3

REPORT INFORMATION
  Report Type: 
  Country: None (occurrence: None)
  Receive Date: 20090904
  Receipt Date: 20090824
  Transmission Date: 20100115
  Serious: Yes (Death, Hospitalization)
  Sender: FDA-Public Use
  Company Number: B0590637A

PATIENT
  Age: 85 Year
  Sex: Male

DRUGS (1)
  1. DIGOXIN [Suspect]

REACTIONS (5)
  - ATRIOVENTRICULAR BLOCK FIRST DEGREE [None]
  - BLOOD POTASSIUM DECREASED [None]
  - BRADYCARDIA [None]
  - GASTROINTESTINAL HAEMORRHAGE [None]
  - THERAPEUTIC AGENT TOXICITY [None]
